FAERS Safety Report 14342927 (Version 1)
Quarter: 2017Q4

REPORT INFORMATION
  Report Type: Spontaneous
  Country: US (occurrence: US)
  Receive Date: 20171230
  Receipt Date: 20171230
  Transmission Date: 20180321
  Serious: Yes (Disabling)
  Sender: FDA-Public Use
  Company Number: None

PATIENT
  Age: 23 Year
  Sex: Female

DRUGS (1)
  1. TRIAMCINOLONE [Suspect]
     Active Substance: TRIAMCINOLONE
     Indication: ECZEMA
     Route: 061
     Dates: start: 20130201

REACTIONS (9)
  - Secretion discharge [None]
  - Eye discharge [None]
  - Dry skin [None]
  - Eczema [None]
  - Eye swelling [None]
  - Drug effect incomplete [None]
  - Rash [None]
  - Skin irritation [None]
  - Steroid withdrawal syndrome [None]

NARRATIVE: CASE EVENT DATE: 20150101
